FAERS Safety Report 5103810-0 (Version None)
Quarter: 2006Q3

REPORT INFORMATION
  Report Type: 
  Country: None (occurrence: None)
  Receive Date: 20060911
  Receipt Date: 20060828
  Transmission Date: 20061208
  Serious: Yes (Other)
  Sender: FDA-Public Use
  Company Number: 2006105742

PATIENT
  Sex: Male

DRUGS (3)
  1. MEDROL [Suspect]
     Indication: ARTHRALGIA
     Dosage: 16 MG (8 MG, 2 IN 1 D) ORAL
     Route: 048
  2. MAGNEX (SULBACTAM, CEFOPERAZONE) [Suspect]
     Indication: DRUG USE FOR UNKNOWN INDICATION
     Dosage: 2 GRAM (1 GRAM, 2 IN 1 D) INTRAVENOUS
     Route: 042
  3. GEFARNATE [Concomitant]

REACTIONS (2)
  - DIABETES MELLITUS [None]
  - THERAPY NON-RESPONDER [None]
